FAERS Safety Report 23191850 (Version 2)
Quarter: 2023Q4

REPORT INFORMATION
  Report Type: Report from Study
  Country: US (occurrence: US)
  Receive Date: 20231116
  Receipt Date: 20231208
  Transmission Date: 20240109
  Serious: Yes (Other)
  Sender: FDA-Public Use
  Company Number: US-ALNYLAM PHARMACEUTICALS, INC.-ALN-2023-006107

PATIENT

DRUGS (2)
  1. GIVLAARI [Suspect]
     Active Substance: GIVOSIRAN SODIUM
     Indication: Porphyria acute
     Dosage: UNK
     Route: 065
     Dates: start: 20230928
  2. HEMATIN [Concomitant]
     Active Substance: HEMATIN
     Indication: Porphyria acute
     Dosage: UNK
     Route: 065

REACTIONS (3)
  - Hypertensive crisis [Recovering/Resolving]
  - Porphyria acute [Not Recovered/Not Resolved]
  - Therapy interrupted [Unknown]
